FAERS Safety Report 24019824 (Version 1)
Quarter: 2024Q2

REPORT INFORMATION
  Report Type: Other
  Country: JP (occurrence: JP)
  Receive Date: 20240627
  Receipt Date: 20240627
  Transmission Date: 20240716
  Serious: Yes (Other)
  Sender: FDA-Public Use
  Company Number: JP-Merck Healthcare KGaA-2024033065

PATIENT
  Age: 69 Year
  Sex: Female

DRUGS (2)
  1. BAVENCIO [Suspect]
     Active Substance: AVELUMAB
     Indication: Clear cell renal cell carcinoma
     Route: 041
  2. AXITINIB [Suspect]
     Active Substance: AXITINIB
     Indication: Clear cell renal cell carcinoma

REACTIONS (3)
  - Cerebral infarction [Unknown]
  - Disease progression [Unknown]
  - Loss of personal independence in daily activities [Unknown]
